FAERS Safety Report 23676744 (Version 1)
Quarter: 2024Q1

REPORT INFORMATION
  Report Type: Spontaneous
  Country: SE (occurrence: SE)
  Receive Date: 20240327
  Receipt Date: 20240327
  Transmission Date: 20240410
  Serious: Yes (Other)
  Sender: FDA-Public Use
  Company Number: None

PATIENT
  Age: 27 Year
  Sex: Female
  Weight: 50 kg

DRUGS (1)
  1. LEVONORGESTREL [Suspect]
     Active Substance: LEVONORGESTREL
     Indication: Contraception
     Dosage: 14?G/DAY
     Route: 015

REACTIONS (6)
  - Acne [Recovered/Resolved]
  - Uterine pain [Recovered/Resolved]
  - Suicidal ideation [Recovered/Resolved]
  - Libido decreased [Recovered/Resolved]
  - Depressed mood [Recovered/Resolved]
  - Premenstrual dysphoric disorder [Recovered/Resolved]
